FAERS Safety Report 18746266 (Version 1)
Quarter: 2021Q1

REPORT INFORMATION
  Report Type: Spontaneous
  Country: FI (occurrence: FI)
  Receive Date: 20210115
  Receipt Date: 20210115
  Transmission Date: 20210419
  Serious: Yes (Other)
  Sender: FDA-Public Use
  Company Number: FI-BIOGEN-2021BI00967302

PATIENT
  Age: 64 Year
  Sex: Male

DRUGS (2)
  1. TAMSULOSIINIHYDROKLORIDI ORION [Concomitant]
     Indication: BENIGN PROSTATIC HYPERPLASIA
     Route: 048
     Dates: start: 20180410
  2. TECFIDERA [Suspect]
     Active Substance: DIMETHYL FUMARATE
     Indication: MULTIPLE SCLEROSIS
     Route: 048
     Dates: start: 20150711

REACTIONS (2)
  - Metastases to spine [Not Recovered/Not Resolved]
  - Lung cancer metastatic [Not Recovered/Not Resolved]
